FAERS Safety Report 7476638-4 (Version None)
Quarter: 2011Q2

REPORT INFORMATION
  Report Type: 
  Country: None (occurrence: None)
  Receive Date: 20110510
  Receipt Date: 20110510
  Transmission Date: 20111010
  Serious: No
  Sender: FDA-Public Use
  Company Number: None

PATIENT
  Age: 84 Year
  Sex: Female
  Weight: 99.7913 kg

DRUGS (1)
  1. ALENDRONATE SODIUM [Suspect]
     Indication: OSTEOPOROSIS PROPHYLAXIS
     Dosage: 70 MG WEEKLY PO
     Route: 048
     Dates: start: 20101130, end: 20110429

REACTIONS (4)
  - MYALGIA [None]
  - MUSCLE SPASMS [None]
  - BONE PAIN [None]
  - ARTHRALGIA [None]
